FAERS Safety Report 4366391-5 (Version None)
Quarter: 2004Q2

REPORT INFORMATION
  Report Type: 
  Country: None (occurrence: None)
  Receive Date: 20040526
  Receipt Date: 20040526
  Transmission Date: 20050107
  Serious: Yes (Hospitalization)
  Sender: FDA-Public Use
  Company Number: None

PATIENT
  Age: 66 Year
  Sex: Male
  Weight: 72.5755 kg

DRUGS (9)
  1. GEMCITABINE 600 MG/M2 [Suspect]
     Indication: NON-SMALL CELL LUNG CANCER
     Dosage: 1130 Q WK X 2 IV
     Route: 042
     Dates: start: 20031215
  2. RADIATION 1.8 GY [Suspect]
     Indication: NON-SMALL CELL LUNG CANCER
     Dosage: 1.8 GY 5 DOSES X 7 WKS
     Dates: start: 20031219
  3. COZAAR [Concomitant]
  4. NORVASC [Concomitant]
  5. ASPIRIN [Concomitant]
  6. VITRACET [Concomitant]
  7. PREVACID [Concomitant]
  8. VIAGARA [Concomitant]
  9. ANDROGEL [Concomitant]

REACTIONS (5)
  - DYSPNOEA [None]
  - DYSPNOEA AT REST [None]
  - FATIGUE [None]
  - ODYNOPHAGIA [None]
  - WEIGHT DECREASED [None]
